FAERS Safety Report 8556676-0 (Version None)
Quarter: 2012Q3

REPORT INFORMATION
  Report Type: 
  Country: None (occurrence: None)
  Receive Date: 20120719
  Receipt Date: 20120717
  Transmission Date: 20120928
  Serious: Yes (Disabling)
  Sender: FDA-Public Use
  Company Number: 2012AP002092

PATIENT
  Age: 43 Year
  Sex: Male

DRUGS (3)
  1. OMEPRAZOLE [Suspect]
     Indication: DYSPEPSIA
     Dosage: 20 MG,, PO
     Route: 048
     Dates: end: 20120630
  2. OTHER COMBINATIONS (ANTACIDS, OTHER COMBINATIONS) [Concomitant]
  3. ANTACIDS [Concomitant]

REACTIONS (5)
  - SLEEP APNOEA SYNDROME [None]
  - COUGH [None]
  - VOMITING [None]
  - GASTROOESOPHAGEAL REFLUX DISEASE [None]
  - ASTHMA [None]
